FAERS Safety Report 12204481 (Version 1)
Quarter: 2016Q1

REPORT INFORMATION
  Report Type: Spontaneous
  Country: US (occurrence: None)
  Receive Date: 20160322
  Receipt Date: 20160322
  Transmission Date: 20160526
  Serious: Yes (Disabling)
  Sender: FDA-Public Use
  Company Number: None

PATIENT
  Age: 2 Year
  Sex: Male
  Weight: 24.49 kg

DRUGS (4)
  1. MULTIVITAMIN GUMMIES [Concomitant]
  2. POLYETHYLENE GLYCOL 3350, NF POWDER FOR SOLUTION, LAXATIVE [Suspect]
     Active Substance: POLYETHYLENE GLYCOL 3350
     Indication: CONSTIPATION
     Dosage: ONCE DAILY ADD 17 MG TO WATER OR JUICE
     Route: 048
     Dates: start: 20110709, end: 20160319
  3. RITILAN [Concomitant]
  4. CLONODINE [Concomitant]

REACTIONS (15)
  - Disturbance in attention [None]
  - Anger [None]
  - Mastication disorder [None]
  - Abnormal behaviour [None]
  - Seizure [None]
  - Drug effect decreased [None]
  - Attention deficit/hyperactivity disorder [None]
  - Anxiety [None]
  - Mood swings [None]
  - Headache [None]
  - Learning disability [None]
  - Obsessive-compulsive disorder [None]
  - Staring [None]
  - Aggression [None]
  - Tic [None]

NARRATIVE: CASE EVENT DATE: 20110709
